FAERS Safety Report 5497253-8 (Version None)
Quarter: 2007Q4

REPORT INFORMATION
  Report Type: 
  Country: None (occurrence: None)
  Receive Date: 20071025
  Receipt Date: 20061211
  Transmission Date: 20080405
  Serious: No
  Sender: FDA-Public Use
  Company Number: A0620706A

PATIENT
  Age: 79 Year
  Sex: Female

DRUGS (9)
  1. ADVAIR DISKUS 100/50 [Suspect]
     Indication: ASTHMA
     Dosage: 1PUFF TWICE PER DAY
     Route: 055
     Dates: start: 20060727
  2. SINGULAIR [Concomitant]
  3. FOSAMAX [Concomitant]
  4. ZOLOFT [Concomitant]
  5. HYDROCHLOROTHIAZIDE [Concomitant]
  6. PREMARIN [Concomitant]
  7. PRILOSEC [Concomitant]
  8. POTASSIUM CHLORIDE [Concomitant]
  9. THYROID TAB [Concomitant]

REACTIONS (4)
  - COUGH [None]
  - DRUG INEFFECTIVE [None]
  - DYSPNOEA [None]
  - PHARMACEUTICAL PRODUCT COMPLAINT [None]
